FAERS Safety Report 9099853 (Version 2)
Quarter: 2013Q1

REPORT INFORMATION
  Report Type: Spontaneous
  Country: US (occurrence: US)
  Receive Date: 20130214
  Receipt Date: 20130307
  Transmission Date: 20140127
  Serious: Yes (Other)
  Sender: FDA-Public Use
  Company Number: US-JNJFOC-20130203106

PATIENT
  Sex: Female
  Weight: 87.09 kg

DRUGS (5)
  1. ULTRAM [Suspect]
     Indication: PAIN
     Route: 065
  2. LYRICA [Concomitant]
     Route: 065
  3. VITAMIN D2 [Concomitant]
     Indication: VITAMIN D DEFICIENCY
     Dosage: 50000 UNIT, 3 X 1 WEEK
     Route: 048
  4. LASIX [Concomitant]
     Dosage: ONE TABLET DAILY AS NEEDED WITH SWELLING, EAT ORANGE OR BANANA.
     Route: 048
  5. FLEXERIL [Concomitant]
     Dosage: 1 TABLET ORALLY BID NPM
     Route: 048

REACTIONS (7)
  - Activities of daily living impaired [Unknown]
  - Myoclonus [Unknown]
  - Myositis [Unknown]
  - Dyskinesia [Unknown]
  - Paraesthesia [Unknown]
  - Hypoaesthesia [Unknown]
  - Myalgia [Unknown]
